FAERS Safety Report 9551075 (Version 1)
Quarter: 2013Q3

REPORT INFORMATION
  Report Type: Spontaneous
  Country: US (occurrence: US)
  Receive Date: 20130925
  Receipt Date: 20130925
  Transmission Date: 20140515
  Serious: Yes (Disabling)
  Sender: FDA-Public Use
  Company Number: US-JNJFOC-20130907383

PATIENT
  Sex: 0

DRUGS (1)
  1. NICOTROL INHALER [Suspect]
     Indication: SMOKING CESSATION THERAPY
     Dosage: ONE CARTRIDGE EVERY OTHER DAY
     Route: 065
     Dates: start: 2000

REACTIONS (3)
  - Brain neoplasm [Unknown]
  - Staphylococcal infection [Unknown]
  - Dysuria [Unknown]
